FAERS Safety Report 8116597-4 (Version None)
Quarter: 2012Q1

REPORT INFORMATION
  Report Type: 
  Country: None (occurrence: None)
  Receive Date: 20120206
  Receipt Date: 20120202
  Transmission Date: 20120608
  Serious: Yes (Hospitalization, Disabling, Other)
  Sender: FDA-Public Use
  Company Number: CA-PFIZER INC-2011127925

PATIENT
  Age: 86 Year
  Sex: Female
  Weight: 38.549 kg

DRUGS (9)
  1. TYLENOL W/ CODEINE NO. 3 [Concomitant]
     Indication: GROIN PAIN
     Dosage: UNK
     Dates: start: 20100601
  2. ROBAXICIN [Concomitant]
     Indication: PAIN IN EXTREMITY
  3. SINEMET [Concomitant]
     Indication: PARKINSON'S DISEASE
     Dosage: UNK
  4. ARICEPT [Suspect]
     Indication: DEMENTIA
     Dosage: ONCE DAILY IN MORNING
     Route: 048
     Dates: start: 20100629, end: 20100713
  5. TYLENOL W/ CODEINE NO. 3 [Concomitant]
     Indication: PAIN IN EXTREMITY
  6. ASPIRIN [Concomitant]
     Dosage: UNK
  7. RAMIPRIL [Suspect]
     Indication: TRANSIENT ISCHAEMIC ATTACK
     Dosage: UNK
     Route: 048
     Dates: start: 20100601, end: 20100101
  8. AGGRENOX [Suspect]
     Indication: TRANSIENT ISCHAEMIC ATTACK
     Dosage: UNK
     Route: 048
     Dates: start: 20100601, end: 20100101
  9. ROBAXICIN [Concomitant]
     Indication: GROIN PAIN
     Dosage: UNK
     Dates: start: 20100601

REACTIONS (7)
  - ORTHOSTATIC HYPOTENSION [None]
  - DEMENTIA [None]
  - GASTROOESOPHAGEAL REFLUX DISEASE [None]
  - CONVULSION [None]
  - DECREASED APPETITE [None]
  - ALTERED STATE OF CONSCIOUSNESS [None]
  - LOSS OF CONSCIOUSNESS [None]
